FAERS Safety Report 5153095-4 (Version None)
Quarter: 2006Q4

REPORT INFORMATION
  Report Type: 
  Country: None (occurrence: None)
  Receive Date: 20061114
  Receipt Date: 20061114
  Transmission Date: 20070319
  Serious: No
  Sender: FDA-Public Use
  Company Number: None

PATIENT

DRUGS (2)
  1. INVANZ [Suspect]
     Dosage: POWDER  VIAL 1GM
  2. VANCOMYCIN [Suspect]
     Dosage: POWDER  VIAL 1GM

REACTIONS (2)
  - DRUG DISPENSING ERROR [None]
  - MEDICATION ERROR [None]
